FAERS Safety Report 23944260 (Version 1)
Quarter: 2024Q2

REPORT INFORMATION
  Report Type: Other
  Country: GR (occurrence: None)
  Receive Date: 20240606
  Receipt Date: 20240606
  Transmission Date: 20240715
  Serious: Yes (Other)
  Sender: FDA-Public Use
  Company Number: GR-AMGEN-GRCSP2024098017

PATIENT
  Age: 63 Year
  Sex: Male

DRUGS (14)
  1. BEVACIZUMAB [Suspect]
     Active Substance: BEVACIZUMAB
     Indication: Hepatocellular carcinoma
     Dosage: UNK
     Route: 065
  2. BEVACIZUMAB [Suspect]
     Active Substance: BEVACIZUMAB
     Indication: Cholangiocarcinoma
  3. ATEZOLIZUMAB [Suspect]
     Active Substance: ATEZOLIZUMAB
     Indication: Hepatocellular carcinoma
     Dosage: UNK
     Route: 065
  4. ATEZOLIZUMAB [Suspect]
     Active Substance: ATEZOLIZUMAB
     Indication: Cholangiocarcinoma
  5. LEUCOVORIN CALCIUM [Concomitant]
     Active Substance: LEUCOVORIN CALCIUM
     Indication: Cholangiocarcinoma
  6. LEUCOVORIN CALCIUM [Concomitant]
     Active Substance: LEUCOVORIN CALCIUM
     Indication: Hepatocellular carcinoma
  7. FLUOROURACIL [Concomitant]
     Active Substance: FLUOROURACIL
     Indication: Cholangiocarcinoma
  8. FLUOROURACIL [Concomitant]
     Active Substance: FLUOROURACIL
     Indication: Hepatocellular carcinoma
  9. IRINOTECAN HYDROCHLORIDE [Concomitant]
     Active Substance: IRINOTECAN HYDROCHLORIDE
     Indication: Cholangiocarcinoma
  10. IRINOTECAN HYDROCHLORIDE [Concomitant]
     Active Substance: IRINOTECAN HYDROCHLORIDE
     Indication: Hepatocellular carcinoma
  11. CISPLATIN [Concomitant]
     Active Substance: CISPLATIN
     Indication: Hepatocellular carcinoma
  12. CISPLATIN [Concomitant]
     Active Substance: CISPLATIN
     Indication: Cholangiocarcinoma
  13. GEMCITABINE [Concomitant]
     Active Substance: GEMCITABINE
     Indication: Hepatocellular carcinoma
  14. GEMCITABINE [Concomitant]
     Active Substance: GEMCITABINE
     Indication: Cholangiocarcinoma

REACTIONS (5)
  - Mesangioproliferative glomerulonephritis [Unknown]
  - End stage renal disease [Unknown]
  - Disease progression [Recovered/Resolved]
  - Pulmonary oedema [Unknown]
  - Off label use [Unknown]
